FAERS Safety Report 10024476 (Version 1)
Quarter: 2014Q1

REPORT INFORMATION
  Report Type: Spontaneous
  Country: US (occurrence: US)
  Receive Date: 20140320
  Receipt Date: 20140320
  Transmission Date: 20141002
  Serious: No
  Sender: FDA-Public Use
  Company Number: US-PFIZER INC-2014079389

PATIENT
  Age: 56 Year
  Sex: Male
  Weight: 77.1 kg

DRUGS (5)
  1. LYRICA [Suspect]
     Indication: NEUROPATHY PERIPHERAL
     Dosage: 50 MG, UNK
     Route: 048
     Dates: start: 2013
  2. LYRICA [Suspect]
     Dosage: 75 MG, 2X/DAY
  3. PLAVIX [Concomitant]
     Dosage: UNK
  4. PROPYLTHIOURACIL [Concomitant]
     Indication: THYROID DISORDER
     Dosage: 500 MG, UNK
  5. BAYER ASPIRIN [Concomitant]
     Indication: MYOCARDIAL INFARCTION
     Dosage: UNK

REACTIONS (1)
  - Drug ineffective [Unknown]
